FAERS Safety Report 8170582-5 (Version None)
Quarter: 2012Q1

REPORT INFORMATION
  Report Type: 
  Country: None (occurrence: None)
  Receive Date: 20120104
  Receipt Date: 20111003
  Transmission Date: 20120608
  Serious: No
  Sender: FDA-Public Use
  Company Number: 2011HGS-002605

PATIENT
  Age: 54 Year
  Sex: Female
  Weight: 127.0072 kg

DRUGS (16)
  1. VYTORIN (SERUMLIPIDREDUCING AGENTS) [Concomitant]
  2. CELLCEPT [Concomitant]
  3. SYNTHROID [Concomitant]
  4. BENADRYL [Concomitant]
  5. CELEXA [Concomitant]
  6. TRAZODONE HCL [Concomitant]
  7. FUROSEMIDE [Concomitant]
  8. PERCOCET (XYCOCET) (PARACETAMOL, OXYCODONE HYDROCHLORIDE) [Concomitant]
  9. CARAFATE [Concomitant]
  10. TRAMADOL HCL [Concomitant]
  11. PROTONIX [Concomitant]
  12. CYMBALTA [Concomitant]
  13. PLAQUENIL [Concomitant]
  14. BENLYSTA [Suspect]
     Indication: SYSTEMIC LUPUS ERYTHEMATOSUS
     Dosage: 1 IN 2 WK, INTRAVENOUS DRIP
     Route: 041
     Dates: start: 20110923
  15. SPIRONOLACTONE [Concomitant]
  16. WELLBUTRIN [Concomitant]

REACTIONS (1)
  - DIARRHOEA [None]
